FAERS Safety Report 17793253 (Version 2)
Quarter: 2020Q2

REPORT INFORMATION
  Report Type: Report from Study
  Country: AE (occurrence: AE)
  Receive Date: 20200515
  Receipt Date: 20200618
  Transmission Date: 20200714
  Serious: Yes (Death, Hospitalization)
  Sender: FDA-Public Use
  Company Number: AE-BAYER-2020-045520

PATIENT
  Age: 57 Year
  Sex: Female

DRUGS (4)
  1. MACITENTAN [Concomitant]
     Active Substance: MACITENTAN
     Dosage: UNK
     Dates: start: 2019
  2. ADEMPAS [Suspect]
     Active Substance: RIOCIGUAT
     Indication: PULMONARY ARTERIAL HYPERTENSION
     Dosage: 1 DF, QD
     Dates: start: 2020
  3. SELEXIPAG [Concomitant]
     Active Substance: SELEXIPAG
     Dosage: UNK
     Dates: start: 2019
  4. ADEMPAS [Suspect]
     Active Substance: RIOCIGUAT
     Indication: PULMONARY ARTERIAL HYPERTENSION
     Dosage: 1 DF, TID
     Dates: start: 20200210, end: 2020

REACTIONS (5)
  - Right ventricular failure [None]
  - Death [Fatal]
  - Mobility decreased [Recovering/Resolving]
  - Malaise [Recovering/Resolving]
  - Asthenia [Recovering/Resolving]

NARRATIVE: CASE EVENT DATE: 2020
